FAERS Safety Report 7396923-4 (Version None)
Quarter: 2011Q2

REPORT INFORMATION
  Report Type: 
  Country: None (occurrence: None)
  Receive Date: 20110406
  Receipt Date: 20110330
  Transmission Date: 20111010
  Serious: Yes (Hospitalization)
  Sender: FDA-Public Use
  Company Number: IT-BAYER-2011-027730

PATIENT
  Sex: Female

DRUGS (2)
  1. ASPIRIN [Suspect]
     Indication: CEREBROVASCULAR DISORDER
     Dosage: DAILY DOSE 100 MG
     Route: 048
     Dates: start: 20060324, end: 20110324
  2. IBRUPROFEN [Suspect]
     Indication: WRIST FRACTURE
     Dosage: 400 MG, PRN
     Route: 048
     Dates: start: 20110223, end: 20110323

REACTIONS (1)
  - ULCER HAEMORRHAGE [None]
